FAERS Safety Report 7002060-0 (Version None)
Quarter: 2010Q3

REPORT INFORMATION
  Report Type: 
  Country: None (occurrence: None)
  Receive Date: 20100917
  Receipt Date: 20100917
  Transmission Date: 20110219
  Serious: Yes (Life-Threatening, Hospitalization)
  Sender: FDA-Public Use
  Company Number: None

PATIENT
  Age: 46 Year
  Sex: Female
  Weight: 64.4108 kg

DRUGS (2)
  1. ADVIL [Suspect]
     Indication: PAIN MANAGEMENT
     Dosage: 600MG Q 6HRS BY MOUTH
     Route: 048
     Dates: start: 20100706, end: 20100815
  2. ADVIL [Suspect]
     Indication: UTERINE LEIOMYOMA
     Dosage: 600MG Q 6HRS BY MOUTH
     Route: 048
     Dates: start: 20100706, end: 20100815

REACTIONS (6)
  - BLOOD PRESSURE INCREASED [None]
  - DIZZINESS [None]
  - HEART RATE INCREASED [None]
  - HOT FLUSH [None]
  - PAIN [None]
  - VAGINAL DISORDER [None]
